FAERS Safety Report 4664986-2 (Version None)
Quarter: 2005Q2

REPORT INFORMATION
  Report Type: 
  Country: None (occurrence: None)
  Receive Date: 20050517
  Receipt Date: 20050503
  Transmission Date: 20051028
  Serious: Yes (Death)
  Sender: FDA-Public Use
  Company Number: MK200504-0137-2

PATIENT
  Age: 87 Year
  Sex: Female

DRUGS (3)
  1. ANAFRANIL [Suspect]
     Indication: DEPRESSION
     Dosage: 25 MG, QD, IV
     Route: 042
     Dates: start: 20050331, end: 20050403
  2. GASTER [Concomitant]
     Indication: ANOREXIA
  3. MAXIPIME [Concomitant]

REACTIONS (12)
  - ALANINE AMINOTRANSFERASE INCREASED [None]
  - ASPARTATE AMINOTRANSFERASE INCREASED [None]
  - BLOOD ALKALINE PHOSPHATASE INCREASED [None]
  - BLOOD CREATINE PHOSPHOKINASE INCREASED [None]
  - BLOOD CREATININE INCREASED [None]
  - BLOOD UREA INCREASED [None]
  - CONVULSION [None]
  - DEPRESSED LEVEL OF CONSCIOUSNESS [None]
  - MULTI-ORGAN FAILURE [None]
  - NEUROLEPTIC MALIGNANT SYNDROME [None]
  - PYREXIA [None]
  - RESPIRATORY ARREST [None]
